FAERS Safety Report 5029545-0 (Version None)
Quarter: 2006Q2

REPORT INFORMATION
  Report Type: 
  Country: None (occurrence: None)
  Receive Date: 20060620
  Receipt Date: 20060419
  Transmission Date: 20061013
  Serious: Yes (Hospitalization, Other)
  Sender: FDA-Public Use
  Company Number: PHBS2006JP05897

PATIENT
  Age: 29 Year
  Sex: Female

DRUGS (10)
  1. TEGRETOL [Suspect]
     Indication: BIPOLAR I DISORDER
     Dosage: 100 MG/DAY
     Route: 048
     Dates: start: 20060414, end: 20060417
  2. DEPAS [Concomitant]
     Dosage: 0.5 MG, UNK
     Route: 048
  3. ALPRAZOLAM [Concomitant]
     Dosage: 0.8 MG, UNK
     Route: 048
  4. DEPROMEL [Concomitant]
     Dosage: 75 MG, UNK
     Route: 048
  5. LIMAS [Concomitant]
     Dosage: 300 MG, UNK
     Route: 048
  6. SILECE [Concomitant]
     Dosage: 2 MG, UNK
     Route: 048
  7. BENZALIN [Concomitant]
     Dosage: 10 MG, UNK
     Route: 048
  8. AMOBAN [Concomitant]
     Dosage: 10 MG, UNK
     Route: 048
  9. DORAL [Concomitant]
     Dosage: 20 MG, UNK
     Route: 048
  10. VEGETAMIN A [Concomitant]
     Dosage: 2 DF, UNK
     Route: 048

REACTIONS (8)
  - ERYTHEMA [None]
  - LYMPHADENITIS [None]
  - LYMPHADENOPATHY [None]
  - MALAISE [None]
  - PURPURA [None]
  - PYREXIA [None]
  - RASH [None]
  - RASH MACULO-PAPULAR [None]
